FAERS Safety Report 7362051-7 (Version None)
Quarter: 2011Q1

REPORT INFORMATION
  Report Type: 
  Country: None (occurrence: None)
  Receive Date: 20110318
  Receipt Date: 20110221
  Transmission Date: 20110831
  Serious: No
  Sender: FDA-Public Use
  Company Number: US-B.I. PHARMACEUTICALS,INC./RIDGEFIELD-2011-BP-01235BP

PATIENT
  Sex: Female

DRUGS (7)
  1. LOSARTAN POTASSIUM [Concomitant]
     Indication: HYPERTENSION
  2. PROPYLTHIOURACIL [Concomitant]
     Indication: THYROID DISORDER
  3. XALATAN [Concomitant]
     Indication: GLAUCOMA
  4. PRADAXA [Suspect]
     Indication: ATRIAL FIBRILLATION
     Dosage: 300 MG
     Route: 048
     Dates: start: 20110101
  5. METOPROLOL SUCCINATE [Concomitant]
     Indication: HYPERTENSION
  6. MULTIVITAMIN [Concomitant]
     Indication: PROPHYLAXIS
  7. CALCIUM [Concomitant]
     Indication: PROPHYLAXIS

REACTIONS (2)
  - DYSPEPSIA [None]
  - WEIGHT INCREASED [None]
